FAERS Safety Report 4654339-5 (Version None)
Quarter: 2005Q2

REPORT INFORMATION
  Report Type: 
  Country: None (occurrence: None)
  Receive Date: 20050404
  Receipt Date: 20050201
  Transmission Date: 20051028
  Serious: No
  Sender: FDA-Public Use
  Company Number: USA041081165

PATIENT
  Age: 59 Year
  Sex: Female
  Weight: 57 kg

DRUGS (3)
  1. CYMBALTA [Suspect]
     Indication: NEURALGIA
     Dosage: 60 MG DAY
     Dates: start: 20041006
  2. WELLBUTIN SR           (BUPROPION HYDROCHLORIDE) [Concomitant]
  3. ZOLOFT [Concomitant]

REACTIONS (5)
  - ASTHENIA [None]
  - CONSTIPATION [None]
  - DEPRESSION [None]
  - MUSCULAR WEAKNESS [None]
  - NERVOUSNESS [None]
